FAERS Safety Report 17327767 (Version 1)
Quarter: 2020Q1

REPORT INFORMATION
  Report Type: Spontaneous
  Country: US (occurrence: US)
  Receive Date: 20200127
  Receipt Date: 20200127
  Transmission Date: 20200409
  Serious: Yes (Hospitalization, Other)
  Sender: FDA-Public Use
  Company Number: US-MYLANLABS-2020M1010385

PATIENT
  Age: 67 Year
  Sex: Male

DRUGS (3)
  1. GENTAMICIN. [Suspect]
     Active Substance: GENTAMICIN
     Indication: ENDOCARDITIS BACTERIAL
     Route: 065
  2. RIFAMPIN. [Concomitant]
     Active Substance: RIFAMPIN
     Indication: ENDOCARDITIS BACTERIAL
     Dosage: 300 MILLIGRAM; 12 HR
     Route: 048
  3. VANCOMYCIN [Suspect]
     Active Substance: VANCOMYCIN
     Indication: ENDOCARDITIS BACTERIAL
     Route: 065

REACTIONS (3)
  - End stage renal disease [Unknown]
  - Renal tubular necrosis [Unknown]
  - Acute kidney injury [Unknown]
